FAERS Safety Report 4633522-9 (Version None)
Quarter: 2005Q2

REPORT INFORMATION
  Report Type: 
  Country: None (occurrence: None)
  Receive Date: 20050331
  Receipt Date: 20041108
  Transmission Date: 20051028
  Serious: Yes (Other)
  Sender: FDA-Public Use
  Company Number: 200415380BCC

PATIENT
  Age: 64 Year
  Sex: Female
  Weight: 70.3075 kg

DRUGS (7)
  1. ALEVE [Suspect]
     Indication: ARTHRALGIA
     Dosage: 440 MG, ONCE, ORAL
     Route: 048
     Dates: start: 20041105
  2. ACTONEL [Concomitant]
  3. CALCIUM GLUCONATE [Concomitant]
  4. CENTRUM VITAMINS [Concomitant]
  5. GLUCOSAMINE [Concomitant]
  6. ST. JOSEPH'S ASPIRIN [Concomitant]
  7. CELEBREX [Concomitant]

REACTIONS (9)
  - ANAPHYLACTIC REACTION [None]
  - ASTHENIA [None]
  - DISORIENTATION [None]
  - EAR CONGESTION [None]
  - HYPOTENSION [None]
  - PRURITUS GENERALISED [None]
  - THROAT TIGHTNESS [None]
  - URTICARIA [None]
  - VISUAL DISTURBANCE [None]
